FAERS Safety Report 11064283 (Version 3)
Quarter: 2015Q2

REPORT INFORMATION
  Report Type: Report from Study
  Country: JP (occurrence: JP)
  Receive Date: 20150424
  Receipt Date: 20150625
  Transmission Date: 20150821
  Serious: Yes (Hospitalization, Other)
  Sender: FDA-Public Use
  Company Number: JP-TAKEDA-2015TJP006669

PATIENT
  Age: 80 Year
  Sex: Male
  Weight: 52 kg

DRUGS (2)
  1. ALOGLIPTIN [Suspect]
     Active Substance: ALOGLIPTIN
     Indication: TYPE 2 DIABETES MELLITUS
     Dosage: 25 MG, QD
     Route: 048
     Dates: start: 20110223
  2. AMARYL [Concomitant]
     Active Substance: GLIMEPIRIDE
     Indication: TYPE 2 DIABETES MELLITUS
     Dosage: 1 MG, UNK
     Route: 048
     Dates: start: 20110520

REACTIONS (1)
  - Intestinal obstruction [Recovered/Resolved]

NARRATIVE: CASE EVENT DATE: 20120727
